FAERS Safety Report 8215943 (Version 6)
Quarter: 2014Q4

REPORT INFORMATION
  Report Type: Spontaneous
  Country: US (occurrence: US)
  Receive Date: 20111031
  Receipt Date: 20141215
  Transmission Date: 20150529
  Serious: Yes (Hospitalization, Other)
  Sender: FDA-Public Use
  Company Number: US-BAYER-2011-102722

PATIENT
  Age: 23 Year
  Sex: Female
  Weight: 66 kg

DRUGS (3)
  1. PRENATAL VITAMINS [Concomitant]
     Active Substance: VITAMINS
  2. MIRENA [Suspect]
     Active Substance: LEVONORGESTREL
     Dosage: 20 MCG/24HR, CONT
     Route: 015
     Dates: start: 20061024
  3. ZITHROMAX [Concomitant]
     Active Substance: AZITHROMYCIN DIHYDRATE

REACTIONS (22)
  - Urinary tract infection [None]
  - Injury [None]
  - Infection [None]
  - Depression [None]
  - Device issue [None]
  - Anxiety [None]
  - Ovarian cyst [None]
  - Premature labour [Recovered/Resolved]
  - Uterine perforation [None]
  - Uterine haemorrhage [None]
  - Discomfort [None]
  - Adnexa uteri mass [None]
  - Tubo-ovarian abscess [None]
  - Headache [None]
  - Device misuse [None]
  - Pregnancy with contraceptive device [Recovered/Resolved]
  - Pelvic inflammatory disease [None]
  - Abdominal pain [None]
  - Mood swings [None]
  - Abdominal pain lower [None]
  - Musculoskeletal chest pain [None]
  - Drug ineffective [None]

NARRATIVE: CASE EVENT DATE: 2008
